FAERS Safety Report 14881081 (Version 1)
Quarter: 2018Q2

REPORT INFORMATION
  Report Type: Spontaneous
  Country: US (occurrence: US)
  Receive Date: 20180425
  Receipt Date: 20180425
  Transmission Date: 20180711
  Serious: Yes (Hospitalization)
  Sender: FDA-Public Use
  Company Number: None

PATIENT
  Age: 3 Year
  Sex: Female
  Weight: 10.3 kg

DRUGS (5)
  1. DEXAMETHASONE. [Suspect]
     Active Substance: DEXAMETHASONE
     Dates: end: 20180402
  2. VINCRISTINE SULFATE. [Concomitant]
     Active Substance: VINCRISTINE SULFATE
     Dates: end: 20180328
  3. ONCASPAR [Concomitant]
     Active Substance: PEGASPARGASE
     Dosage: 1400 UNIT
     Dates: end: 20180308
  4. METHOTREXATE. [Concomitant]
     Active Substance: METHOTREXATE
     Dates: end: 20180402
  5. CYTARABINE. [Concomitant]
     Active Substance: CYTARABINE
     Dates: end: 20180305

REACTIONS (6)
  - General physical health deterioration [None]
  - Gastrointestinal necrosis [None]
  - Intestinal perforation [None]
  - Tachycardia [None]
  - Ileostomy [None]
  - Peritonitis [None]

NARRATIVE: CASE EVENT DATE: 20180407
